FAERS Safety Report 17432993 (Version 1)
Quarter: 2020Q1

REPORT INFORMATION
  Report Type: Spontaneous
  Country: US (occurrence: US)
  Receive Date: 20200219
  Receipt Date: 20200219
  Transmission Date: 20200409
  Serious: No
  Sender: FDA-Public Use
  Company Number: US-BIOGEN-2020BI00833864

PATIENT
  Age: 35 Year
  Sex: Female

DRUGS (2)
  1. VUMERITY [Suspect]
     Active Substance: DIROXIMEL FUMARATE
     Dosage: VUMERITY DOSING IS 231 MG CAPSULE, TAKE 2 CAPSULES (462 MG) TWICE A DAY, HENCE 4 PER 1 DAY
     Route: 048
     Dates: start: 20200129
  2. VUMERITY [Suspect]
     Active Substance: DIROXIMEL FUMARATE
     Indication: MULTIPLE SCLEROSIS
     Dosage: TWO 231 MG CAPSULES BY MOUTH BID
     Route: 048
     Dates: start: 20200128

REACTIONS (3)
  - Vomiting [Recovered/Resolved]
  - Hypophagia [Recovered/Resolved]
  - Prescribed overdose [Unknown]

NARRATIVE: CASE EVENT DATE: 20200128
